FAERS Safety Report 9657697 (Version 1)
Quarter: 2013Q4

REPORT INFORMATION
  Report Type: Spontaneous
  Country: IT (occurrence: None)
  Receive Date: 20131029
  Receipt Date: 20131029
  Transmission Date: 20140711
  Serious: Yes (Other)
  Sender: FDA-Public Use
  Company Number: AUR-APL-2013-08992

PATIENT
  Sex: Male

DRUGS (1)
  1. LEVOFLOXACIN [Suspect]
     Dosage: UNKNOWN

REACTIONS (2)
  - Lip oedema [None]
  - Tongue oedema [None]
